FAERS Safety Report 6057886-7 (Version None)
Quarter: 2009Q1

REPORT INFORMATION
  Report Type: 
  Country: None (occurrence: None)
  Receive Date: 20090126
  Receipt Date: 20090109
  Transmission Date: 20090719
  Serious: Yes (Other)
  Sender: FDA-Public Use
  Company Number: 035728

PATIENT
  Age: 31 Year
  Sex: Female

DRUGS (4)
  1. CLARAVIS [Suspect]
     Dosage: 30MG, BID, ORAL
     Route: 048
     Dates: start: 20080702, end: 20080817
  2. CLARAVIS [Suspect]
     Dosage: 30MG, BID, ORAL
     Route: 048
     Dates: start: 20080331
  3. SOTRET [Suspect]
     Dosage: 30 MG, BID, ORAL
     Route: 048
     Dates: start: 20080430
  4. ACCUTANE [Suspect]
     Dosage: 30 MG, BID, ORAL
     Route: 048
     Dates: start: 20080602

REACTIONS (2)
  - DRUG EXPOSURE DURING PREGNANCY [None]
  - PREGNANCY TEST POSITIVE [None]
